FAERS Safety Report 6994580-X (Version None)
Quarter: 2010Q3

REPORT INFORMATION
  Report Type: 
  Country: None (occurrence: None)
  Receive Date: 20100917
  Receipt Date: 20100916
  Transmission Date: 20110219
  Serious: Yes (Life-Threatening, Disabling)
  Sender: FDA-Public Use
  Company Number: US-MERCK-1008USA03796

PATIENT
  Age: 86 Year
  Sex: Female
  Weight: 65 kg

DRUGS (14)
  1. JANUVIA [Suspect]
     Indication: TYPE 2 DIABETES MELLITUS
     Route: 048
     Dates: start: 20070621
  2. GLIMEPIRIDE [Concomitant]
     Indication: DIABETES MELLITUS
     Route: 048
  3. NEXIUM [Concomitant]
     Indication: GASTROOESOPHAGEAL REFLUX DISEASE
     Route: 048
  4. NEURONTIN [Concomitant]
     Indication: NEUROPATHY PERIPHERAL
     Route: 048
  5. CLONAZEPAM [Concomitant]
     Indication: ANXIETY
     Route: 048
  6. LEVOTHYROXINE SODIUM [Concomitant]
     Indication: HYPOTHYROIDISM
     Route: 048
  7. ASPIRIN [Concomitant]
     Indication: PLATELET AGGREGATION
     Route: 048
  8. TEMODAL [Concomitant]
     Route: 065
  9. LIPITOR [Concomitant]
     Indication: BLOOD CHOLESTEROL
     Route: 048
  10. CARVEDILOL [Concomitant]
     Indication: HYPERTENSION
     Route: 048
     Dates: start: 20100101
  11. MELOXICAM [Concomitant]
     Indication: ARTHRITIS
     Route: 048
  12. ATENOLOL [Concomitant]
     Indication: HYPERTENSION
     Route: 048
  13. HYDROCHLOROTHIAZIDE [Concomitant]
     Indication: HYPERTENSION
     Route: 048
  14. GLYBURIDE [Concomitant]
     Route: 065

REACTIONS (2)
  - PANCREATIC CARCINOMA [None]
  - PANCREATIC DISORDER [None]
